FAERS Safety Report 13226298 (Version 2)
Quarter: 2017Q1

REPORT INFORMATION
  Report Type: Spontaneous
  Country: US (occurrence: US)
  Receive Date: 20170213
  Receipt Date: 20170217
  Transmission Date: 20170428
  Serious: No
  Sender: FDA-Public Use
  Company Number: US-PFIZER INC-2017063527

PATIENT
  Sex: Female

DRUGS (1)
  1. XANAX [Suspect]
     Active Substance: ALPRAZOLAM
     Dosage: UNK, 3X/DAY

REACTIONS (4)
  - Condition aggravated [Unknown]
  - Anxiety [Unknown]
  - Fibromyalgia [Unknown]
  - Drug effect decreased [Unknown]
